FAERS Safety Report 6774816-0 (Version None)
Quarter: 2010Q2

REPORT INFORMATION
  Report Type: 
  Country: None (occurrence: None)
  Receive Date: 20100617
  Receipt Date: 20100608
  Transmission Date: 20101027
  Serious: Yes (Hospitalization)
  Sender: FDA-Public Use
  Company Number: US-ROCHE-709419

PATIENT
  Sex: Male
  Weight: 105.2 kg

DRUGS (16)
  1. BEVACIZUMAB [Suspect]
     Route: 042
     Dates: start: 20100126, end: 20100506
  2. CISPLATIN [Suspect]
     Route: 042
     Dates: start: 20100126, end: 20100513
  3. IRINOTECAN [Suspect]
     Route: 042
     Dates: start: 20100126, end: 20100526
  4. ZOFRAN [Concomitant]
  5. PREVACID [Concomitant]
  6. HYDROCODONE BITARTRATE [Concomitant]
     Dosage: DRUG NAME REPORTED AS HYDROCODONE APAP
  7. ALPRAZOLAM [Concomitant]
  8. BENADRYL [Concomitant]
  9. ZEGERID [Concomitant]
  10. CARAFATE [Concomitant]
  11. COUMADIN [Concomitant]
  12. LIPITOR [Concomitant]
  13. ALLEGRA [Concomitant]
  14. FLONASE [Concomitant]
  15. ASPIRIN [Concomitant]
  16. EMEND [Concomitant]

REACTIONS (3)
  - ASTHENIA [None]
  - DYSARTHRIA [None]
  - MENINGITIS BACTERIAL [None]
